FAERS Safety Report 7509561-7 (Version None)
Quarter: 2011Q2

REPORT INFORMATION
  Report Type: 
  Country: None (occurrence: None)
  Receive Date: 20110527
  Receipt Date: 20101224
  Transmission Date: 20111010
  Serious: Yes (Hospitalization, Other)
  Sender: FDA-Public Use
  Company Number: US-BAYER-201023511NA

PATIENT
  Sex: Female
  Weight: 87.075 kg

DRUGS (24)
  1. TOPROL-XL [Concomitant]
     Indication: HYPERTENSION
     Dosage: UNK
     Dates: start: 20030701
  2. SPIRONOLACTONE [Concomitant]
     Dosage: 25 MG, UNK
     Dates: start: 20050301, end: 20090101
  3. AMILORIDE HYDROCHLORIDE [Concomitant]
     Indication: HYPERTENSION
     Dosage: UNK
     Dates: start: 20030101
  4. ACETAMINOPHEN AND HYDROCODONE BITARTRATE [Concomitant]
  5. ALBUTEROL SULFATE AUTOHALER [Concomitant]
     Dosage: UNK
     Dates: start: 20040201, end: 20090501
  6. ESZOPICLONE [Concomitant]
     Indication: INSOMNIA
     Dosage: UNK
     Dates: start: 20070101
  7. DURAGESIC-100 [Concomitant]
     Dosage: 100 ?G, Q1HR
  8. POTASSIUM CHLORIDE [Concomitant]
     Indication: BLOOD POTASSIUM DECREASED
     Dosage: UNK
     Dates: start: 20000101
  9. FUROSEMIDE [Concomitant]
     Dosage: 40 MG, UNK
  10. NORVASC [Concomitant]
     Dosage: 5 MG, UNK
  11. TRIAMTEREN HCT [Concomitant]
     Indication: HYPERTENSION
     Dosage: UNK
     Dates: start: 20050301, end: 20090101
  12. CATAPRES-TTS-2 [Concomitant]
  13. MECLIZINE [Concomitant]
     Dosage: 25 MG, UNK
  14. ALLOPURINOL [Concomitant]
     Dosage: 300 MG, UNK
  15. PROPOXYPHENE HCL AND ACETAMINOPHEN [Concomitant]
  16. YASMIN [Suspect]
     Dosage: UNK
     Route: 048
     Dates: start: 20061001, end: 20071101
  17. STEROID [Concomitant]
     Dosage: UNK
     Dates: start: 20070904, end: 20070904
  18. DIOVAN [Concomitant]
     Indication: HYPERTENSION
     Dosage: UNK
     Dates: start: 20000101
  19. TRAMADOL HCL [Concomitant]
     Dosage: 50 MG, UNK
  20. DIOVAN HCT [Concomitant]
     Indication: HYPERTENSION
     Dosage: UNK
     Dates: start: 20000101
  21. XANAX [Concomitant]
     Indication: DEPRESSION
     Dosage: UNK
     Dates: start: 20070101
  22. HYDROMORPHONE HCL [Concomitant]
     Dosage: 4 MG, UNK
  23. NORVASC [Concomitant]
     Indication: HYPERTENSION
     Dosage: UNK
     Dates: start: 20030701
  24. BACLOFEN [Concomitant]
     Dosage: 10 MG, UNK

REACTIONS (8)
  - CHEST PAIN [None]
  - OEDEMA PERIPHERAL [None]
  - DYSPNOEA [None]
  - BACK PAIN [None]
  - DEEP VEIN THROMBOSIS [None]
  - PULMONARY INFARCTION [None]
  - PLEURITIC PAIN [None]
  - PULMONARY EMBOLISM [None]
